FAERS Safety Report 6163489-6 (Version None)
Quarter: 2009Q2

REPORT INFORMATION
  Report Type: 
  Country: None (occurrence: None)
  Receive Date: 20090422
  Receipt Date: 20020131
  Transmission Date: 20091009
  Serious: No
  Sender: FDA-Public Use
  Company Number: US-SOLVAY-00202000324

PATIENT
  Age: 61 Year
  Sex: Female
  Weight: 78.472 kg

DRUGS (7)
  1. LOTENSIN [Concomitant]
     Indication: ESSENTIAL HYPERTENSION
     Route: 048
  2. ANDROGEL [Suspect]
     Indication: ACCIDENTAL EXPOSURE
     Dosage: DAILY DOSE: UNK.
  3. LIPITOR [Concomitant]
     Indication: BLOOD CHOLESTEROL
     Route: 048
  4. EVISTA [Concomitant]
     Indication: HORMONE REPLACEMENT THERAPY
     Route: 048
     Dates: start: 19990101
  5. ACTOS [Concomitant]
     Indication: DIABETES MELLITUS
     Route: 048
     Dates: start: 20010101
  6. GLUCOVANCE [Concomitant]
     Indication: DIABETES MELLITUS
     Route: 048
  7. GLUCOVANCE [Concomitant]
     Dosage: DAILY DOSE: UNK.
     Route: 048
     Dates: start: 20011227

REACTIONS (3)
  - BLOOD GLUCOSE DECREASED [None]
  - ERYTHEMA [None]
  - SWELLING FACE [None]
